FAERS Safety Report 17048957 (Version 1)
Quarter: 2019Q4

REPORT INFORMATION
  Report Type: Spontaneous
  Country: US (occurrence: US)
  Receive Date: 20191119
  Receipt Date: 20191119
  Transmission Date: 20200122
  Serious: No
  Sender: FDA-Public Use
  Company Number: US-SA-2019SA319070

PATIENT
  Sex: Female

DRUGS (1)
  1. ALLEGRA [Suspect]
     Active Substance: FEXOFENADINE HYDROCHLORIDE
     Indication: URTICARIA
     Dosage: 60 MG
     Route: 065

REACTIONS (6)
  - Dysphagia [Unknown]
  - Lacrimation increased [Unknown]
  - Drug ineffective [Unknown]
  - Dyspepsia [Unknown]
  - Extra dose administered [Unknown]
  - Rhinorrhoea [Unknown]
